FAERS Safety Report 8290157-7 (Version None)
Quarter: 2012Q2

REPORT INFORMATION
  Report Type: 
  Country: None (occurrence: None)
  Receive Date: 20120417
  Receipt Date: 20120405
  Transmission Date: 20120825
  Serious: Yes (Other)
  Sender: FDA-Public Use
  Company Number: US-JNJFOC-20120403057

PATIENT
  Sex: Female
  Weight: 86.18 kg

DRUGS (3)
  1. SYNTHROID [Concomitant]
  2. REMICADE [Suspect]
     Indication: CROHN'S DISEASE
     Route: 042
     Dates: start: 20100801
  3. REMICADE [Suspect]
     Indication: COLITIS ULCERATIVE
     Route: 042
     Dates: start: 20100801

REACTIONS (3)
  - MYALGIA [None]
  - HYPERTHYROIDISM [None]
  - PAIN [None]
